FAERS Safety Report 15795416 (Version 1)
Quarter: 2019Q1

REPORT INFORMATION
  Report Type: Spontaneous
  Country: US (occurrence: US)
  Receive Date: 20190107
  Receipt Date: 20190107
  Transmission Date: 20190417
  Serious: Yes (Disabling)
  Sender: FDA-Public Use
  Company Number: None

PATIENT
  Age: 36 Year
  Sex: Female
  Weight: 63 kg

DRUGS (4)
  1. VITAMIN D [Concomitant]
     Active Substance: CHOLECALCIFEROL
  2. CIPRO [Suspect]
     Active Substance: CIPROFLOXACIN HYDROCHLORIDE
     Indication: URINARY TRACT INFECTION
     Dates: start: 20181206, end: 20181208
  3. LEVOTHYROXINE. [Concomitant]
     Active Substance: LEVOTHYROXINE
  4. IRON [Concomitant]
     Active Substance: IRON

REACTIONS (10)
  - Hyperacusis [None]
  - Pain in extremity [None]
  - Panic attack [None]
  - Insomnia [None]
  - Tendonitis [None]
  - Feeling of body temperature change [None]
  - Muscle spasms [None]
  - Paraesthesia [None]
  - Hypoaesthesia [None]
  - Feeding disorder [None]

NARRATIVE: CASE EVENT DATE: 20181206
